FAERS Safety Report 5016798-8 (Version None)
Quarter: 2006Q2

REPORT INFORMATION
  Report Type: 
  Country: None (occurrence: None)
  Receive Date: 20060602
  Receipt Date: 20060324
  Transmission Date: 20061013
  Serious: No
  Sender: FDA-Public Use
  Company Number: US-GLAXOSMITHKLINE-A0598958A

PATIENT
  Age: 71 Year
  Sex: Female

DRUGS (14)
  1. AUGMENTIN '125' [Suspect]
     Indication: RESPIRATORY DISORDER
     Dosage: 1000MG PER DAY
     Route: 048
     Dates: start: 20051226
  2. HYZAAR [Concomitant]
  3. KLOR-CON [Concomitant]
  4. DYNACIRC [Concomitant]
  5. WELLBUTRIN SR [Concomitant]
  6. CYMBALTA [Concomitant]
  7. CLARINEX [Concomitant]
  8. ZOCOR [Concomitant]
  9. LEVOTHYROXINE SODIUM [Concomitant]
  10. EVISTA [Concomitant]
  11. VITAMINS [Concomitant]
  12. TYLENOL [Concomitant]
  13. IRON PILLS [Concomitant]
  14. ORAJEL [Concomitant]

REACTIONS (12)
  - ABNORMAL FAECES [None]
  - CHEILITIS [None]
  - CONTUSION [None]
  - DRY MOUTH [None]
  - DYSGEUSIA [None]
  - GLOSSODYNIA [None]
  - LIP DRY [None]
  - MOUTH INJURY [None]
  - ORAL SOFT TISSUE DISORDER [None]
  - PARAESTHESIA ORAL [None]
  - SWELLING FACE [None]
  - TONGUE DISORDER [None]
